FAERS Safety Report 8179325-2 (Version None)
Quarter: 2012Q1

REPORT INFORMATION
  Report Type: 
  Country: None (occurrence: None)
  Receive Date: 20120302
  Receipt Date: 20120221
  Transmission Date: 20120608
  Serious: Yes (Hospitalization, Disabling)
  Sender: FDA-Public Use
  Company Number: MX-GENZYME-CERZ-1002402

PATIENT
  Sex: Male
  Weight: 22 kg

DRUGS (1)
  1. CEREZYME [Suspect]
     Indication: GAUCHER'S DISEASE
     Dosage: UNK
     Route: 042
     Dates: start: 20120210

REACTIONS (7)
  - ARTHRITIS [None]
  - URTICARIA [None]
  - CONTUSION [None]
  - HEADACHE [None]
  - RASH PRURITIC [None]
  - SCAR [None]
  - PYREXIA [None]
